FAERS Safety Report 8612656 (Version 3)
Quarter: 2012Q4

REPORT INFORMATION
  Report Type: 
  Country: CO (occurrence: CO)
  Receive Date: 20120613
  Receipt Date: 20120911
  Transmission Date: 20130627
  Serious: Yes (Hospitalization)
  Sender: FDA-Public Use
  Company Number: CO-PFIZER INC-2012137252

PATIENT
  Age: 49 Year
  Sex: Male

DRUGS (1)
  1. SUTENT [Suspect]
     Dosage: 50 mg, 1x/day
     Route: 065
     Dates: start: 201203, end: 20120511

REACTIONS (4)
  - Ascites [Unknown]
  - Pleural effusion [Unknown]
  - Dysuria [Unknown]
  - Palmar-plantar erythrodysaesthesia syndrome [Unknown]
